FAERS Safety Report 11361298 (Version 1)
Quarter: 2015Q3

REPORT INFORMATION
  Report Type: Spontaneous
  Country: US (occurrence: US)
  Receive Date: 20150810
  Receipt Date: 20150810
  Transmission Date: 20151125
  Serious: Yes (Other)
  Sender: FDA-Public Use
  Company Number: CHPA2015US009251

PATIENT
  Age: 67 Year
  Sex: Male

DRUGS (2)
  1. EXCEDRIN PM [Suspect]
     Active Substance: ACETAMINOPHEN\DIPHENHYDRAMINE\DIPHENHYDRAMINE CITRATE
     Indication: MUSCLE DISORDER
  2. EXCEDRIN PM [Suspect]
     Active Substance: ACETAMINOPHEN\DIPHENHYDRAMINE\DIPHENHYDRAMINE CITRATE
     Indication: SLEEP DISORDER
     Route: 048

REACTIONS (3)
  - Herpes zoster [Recovering/Resolving]
  - Product use issue [Unknown]
  - Therapeutic response unexpected [Unknown]
